FAERS Safety Report 5874495-0 (Version None)
Quarter: 2008Q3

REPORT INFORMATION
  Report Type: 
  Country: None (occurrence: None)
  Receive Date: 20080909
  Receipt Date: 20080828
  Transmission Date: 20090109
  Serious: Yes (Other)
  Sender: FDA-Public Use
  Company Number: PHHY2008CH19464

PATIENT
  Age: 39 Year
  Sex: Male

DRUGS (7)
  1. RITALIN [Suspect]
     Dosage: 400 MG/DAY
  2. RITALIN [Suspect]
     Dosage: 250 MG/DAY
  3. RITALIN [Suspect]
     Dosage: 220 MG/DAY
  4. ESIDRIX [Concomitant]
     Dosage: 12.5 MG/DAY
     Route: 048
  5. EFFEXOR [Concomitant]
     Dosage: 300 MG/DAY
     Route: 048
  6. SEROQUEL [Concomitant]
     Dosage: 50 MG/DAY
     Route: 048
  7. TEMESTA [Concomitant]
     Dosage: 10 MG/DAY
     Route: 048

REACTIONS (5)
  - ANXIETY [None]
  - HYPERHIDROSIS [None]
  - HYPERTENSION [None]
  - OVERDOSE [None]
  - WITHDRAWAL SYNDROME [None]
